FAERS Safety Report 26103865 (Version 1)
Quarter: 2025Q4

REPORT INFORMATION
  Report Type: Report from Study
  Country: US (occurrence: US)
  Receive Date: 20251129
  Receipt Date: 20251129
  Transmission Date: 20260117
  Serious: Yes (Other)
  Sender: ALEXION PHARMACEUTICALS
  Company Number: US-AstraZeneca-CH-01001656A

PATIENT
  Sex: Female

DRUGS (1)
  1. OLAPARIB [Suspect]
     Active Substance: OLAPARIB
     Dosage: UNK
     Route: 065

REACTIONS (15)
  - Brain neoplasm [Unknown]
  - Vasogenic cerebral oedema [Unknown]
  - Iron deficiency [Unknown]
  - Blood phosphorus decreased [Unknown]
  - Blood sodium increased [Unknown]
  - Red cell distribution width increased [Unknown]
  - Mean cell volume [Unknown]
  - Red blood cell count decreased [Unknown]
  - White blood cell count decreased [Unknown]
  - Nasopharyngitis [Unknown]
  - Pleural effusion [Unknown]
  - Speech disorder [Unknown]
  - Visual impairment [Unknown]
  - Headache [Unknown]
  - Asthenia [Unknown]
